FAERS Safety Report 21992367 (Version 1)
Quarter: 2023Q1

REPORT INFORMATION
  Report Type: Spontaneous
  Country: CN (occurrence: CN)
  Receive Date: 20230215
  Receipt Date: 20230215
  Transmission Date: 20230417
  Serious: Yes (Hospitalization, Other)
  Sender: FDA-Public Use
  Company Number: None

PATIENT
  Age: 69 Year
  Sex: Male
  Weight: 80 kg

DRUGS (11)
  1. CYCLOPHOSPHAMIDE [Suspect]
     Active Substance: CYCLOPHOSPHAMIDE
     Indication: Thymoma malignant
     Dosage: 0.8 G, QD, DILUTED WITH 0.9% SODIUM CHLORIDE (100 ML), SECOND CYCLE OF CHEMOTHERAPY, D1
     Route: 041
     Dates: start: 20230110, end: 20230110
  2. CYCLOPHOSPHAMIDE [Suspect]
     Active Substance: CYCLOPHOSPHAMIDE
     Dosage: THIRD CYCLE OF CHEMOTHERAPY
     Route: 041
     Dates: start: 20230202
  3. SODIUM CHLORIDE [Suspect]
     Active Substance: SODIUM CHLORIDE
     Indication: Medication dilution
     Dosage: 100 ML, QD, USED TO DILUTE CYCLOPHOSPHAMIDE (0.8 G), SECOND CYCLE OF CHEMOTHERAPY, CONCENTRATION: 0.
     Route: 041
     Dates: start: 20230110, end: 20230110
  4. SODIUM CHLORIDE [Suspect]
     Active Substance: SODIUM CHLORIDE
     Dosage: THIRD CYCLE OF CHEMOTHERAPY
     Route: 041
     Dates: start: 20230202
  5. EPIRUBICIN HYDROCHLORIDE [Suspect]
     Active Substance: EPIRUBICIN HYDROCHLORIDE
     Indication: Thymoma malignant
     Dosage: 70 MG, QD, DILUTED WITH 0.9% SODIUM CHLORIDE (100 ML), SECOND CYCLE OF CHEMOTHERAPY, D1-D2
     Route: 041
     Dates: start: 20230110, end: 20230111
  6. EPIRUBICIN HYDROCHLORIDE [Suspect]
     Active Substance: EPIRUBICIN HYDROCHLORIDE
     Dosage: THIRD CYCLE OF CHEMOTHERAPY
     Route: 041
     Dates: start: 20230202
  7. CISPLATIN [Suspect]
     Active Substance: CISPLATIN
     Indication: Thymoma malignant
     Dosage: 30 MG, QD, DILUTED WITH 0.9% SODIUM CHLORIDE (500 ML), SECOND CYCLE OF CHEMOTHERAPY, D1-D3
     Route: 041
     Dates: start: 20230110, end: 20230112
  8. CISPLATIN [Suspect]
     Active Substance: CISPLATIN
     Dosage: THIRD CYCLE OF CHEMOTHERAPY
     Route: 041
     Dates: start: 20230202
  9. SODIUM CHLORIDE [Suspect]
     Active Substance: SODIUM CHLORIDE
     Indication: Vehicle solution use
     Dosage: 500 ML, QD, (CONCENTRATION: 0.9%) USED TO DILUTE CISPLATIN (30 MG), SECOND CYCLE OF CHEMOTHERAPY, D1
     Route: 041
     Dates: start: 20230110, end: 20230112
  10. SODIUM CHLORIDE [Suspect]
     Active Substance: SODIUM CHLORIDE
     Dosage: 100 ML, QD, (CONCENTRATION: 0.9%) USED TO DILUTE EPIRUBICIN HYDROCHLORIDE (70 MG), SECOND CYCLE OF C
     Route: 041
     Dates: start: 20230110, end: 20230111
  11. SODIUM CHLORIDE [Suspect]
     Active Substance: SODIUM CHLORIDE
     Dosage: THIRD CYCLE OF CHEMOTHERAPY
     Route: 041
     Dates: start: 20230202

REACTIONS (1)
  - Myelosuppression [Recovered/Resolved]

NARRATIVE: CASE EVENT DATE: 20230129
